FAERS Safety Report 25272405 (Version 1)
Quarter: 2025Q2

REPORT INFORMATION
  Report Type: Spontaneous
  Country: US (occurrence: US)
  Receive Date: 20250506
  Receipt Date: 20250506
  Transmission Date: 20250717
  Serious: Yes (Hospitalization, Other)
  Sender: ZYDUS PHARM
  Company Number: US-CADILA HEALTHCARE LIMITED-US-ZYDUS-122836

PATIENT

DRUGS (1)
  1. ACETAMINOPHEN [Suspect]
     Active Substance: ACETAMINOPHEN
     Indication: Product used for unknown indication
     Route: 065

REACTIONS (9)
  - Acute kidney injury [Unknown]
  - Atrial fibrillation [Unknown]
  - Brain oedema [Unknown]
  - Coagulopathy [Unknown]
  - Gastrointestinal haemorrhage [Unknown]
  - Respiratory failure [Unknown]
  - Shock [Unknown]
  - Acute hepatic failure [Unknown]
  - Thrombocytopenia [Unknown]
